FAERS Safety Report 8221110 (Version 2)
Quarter: 2012Q4

REPORT INFORMATION
  Report Type: 
  Country: US (occurrence: US)
  Receive Date: 20111102
  Receipt Date: 20121226
  Transmission Date: 20130627
  Serious: Yes (Death, Congenital Anomaly, Other)
  Sender: FDA-Public Use
  Company Number: US-PFIZER INC-2011264232

PATIENT
  Sex: Female
  Weight: 2 kg

DRUGS (3)
  1. ZOLOFT [Suspect]
     Dosage: UNK
     Route: 064
  2. PRENATAL VITAMINS [Concomitant]
     Dosage: UNK
     Route: 064
  3. DARVOCET [Concomitant]
     Dosage: UNK
     Route: 064

REACTIONS (15)
  - Maternal exposure timing unspecified [Fatal]
  - Multiple cardiac defects [Fatal]
  - Fallot^s tetralogy [Fatal]
  - Truncus arteriosus persistent [Fatal]
  - Atrial septal defect [Fatal]
  - Congenital pulmonary valve atresia [Fatal]
  - Congenital pulmonary artery anomaly [Fatal]
  - Myocardial ischaemia [Fatal]
  - Pulmonary malformation [Fatal]
  - Congenital arterial malformation [Unknown]
  - Congenital aortic stenosis [Unknown]
  - Ventricular hypokinesia [Unknown]
  - Ventricular hypertrophy [Unknown]
  - Systolic dysfunction [Unknown]
  - Premature baby [Unknown]
